FAERS Safety Report 8900978 (Version 1)
Quarter: 2012Q4

REPORT INFORMATION
  Report Type: 
  Country: HR (occurrence: HR)
  Receive Date: 20121109
  Receipt Date: 20121109
  Transmission Date: 20130627
  Serious: Yes (Hospitalization)
  Sender: FDA-Public Use
  Company Number: HR-ROCHE-1152898

PATIENT
  Age: 82 Year
  Sex: Female

DRUGS (4)
  1. ROCEPHIN [Suspect]
     Indication: PRODUCT USED FOR UNKNOWN INDICATION
     Route: 042
     Dates: start: 20121001, end: 20121004
  2. EDEMID [Concomitant]
     Route: 048
  3. LANITOP [Concomitant]
     Route: 048
  4. TRITACE [Concomitant]
     Route: 048

REACTIONS (3)
  - Diarrhoea [Recovered/Resolved]
  - Clostridium test positive [Recovered/Resolved]
  - Pseudomembranous colitis [Recovered/Resolved]
